FAERS Safety Report 15517670 (Version 1)
Quarter: 2018Q4

REPORT INFORMATION
  Report Type: Spontaneous
  Country: JP (occurrence: JP)
  Receive Date: 20181017
  Receipt Date: 20181017
  Transmission Date: 20190205
  Serious: Yes (Other)
  Sender: FDA-Public Use
  Company Number: JP-PFIZER INC-2018194832

PATIENT
  Age: 43 Year
  Sex: Male
  Weight: 73.3 kg

DRUGS (2)
  1. LOXONIN [Concomitant]
     Active Substance: LOXOPROFEN SODIUM
     Dosage: UNK
  2. LYRICA [Suspect]
     Active Substance: PREGABALIN
     Dosage: 1 DF, 2X/DAY  ( MORNING AND EVENING)
     Route: 048
     Dates: start: 201802, end: 201803

REACTIONS (3)
  - Cataract [Unknown]
  - Visual acuity reduced [Unknown]
  - Therapeutic response decreased [Unknown]
